FAERS Safety Report 6310868-X (Version None)
Quarter: 2009Q3

REPORT INFORMATION
  Report Type: 
  Country: None (occurrence: None)
  Receive Date: 20090812
  Receipt Date: 20090805
  Transmission Date: 20100115
  Serious: Yes (Other)
  Sender: FDA-Public Use
  Company Number: CHNY2009JP02929

PATIENT
  Age: 72 Year
  Sex: Female

DRUGS (5)
  1. NICOTINE [Suspect]
     Indication: SMOKING CESSATION THERAPY
     Dosage: TRANSDERMAL
     Route: 062
  2. POLYCARBOPHIL CALCIUM (POLYCARBOPHIL CALCIUM) [Concomitant]
  3. BAZAROIN (SERRAPEPTASE) [Concomitant]
  4. ZETIA [Concomitant]
  5. BENET (RISEDRONATE SODIUM) [Concomitant]

REACTIONS (2)
  - LIMB DISCOMFORT [None]
  - OEDEMA PERIPHERAL [None]
